FAERS Safety Report 11735355 (Version 4)
Quarter: 2016Q3

REPORT INFORMATION
  Report Type: Report from Study
  Country: US (occurrence: US)
  Receive Date: 20151113
  Receipt Date: 20160706
  Transmission Date: 20161109
  Serious: Yes (Other)
  Sender: FDA-Public Use
  Company Number: US-ACTELION-A-US2015-126998

PATIENT
  Age: 53 Year
  Sex: Female

DRUGS (4)
  1. ADCIRCA [Concomitant]
     Active Substance: TADALAFIL
     Dosage: UNK
  2. OPSUMIT [Suspect]
     Active Substance: MACITENTAN
     Indication: PULMONARY ARTERIAL HYPERTENSION
     Dosage: 10 MG, QD
     Route: 048
     Dates: start: 20151008
  3. LASIX [Concomitant]
     Active Substance: FUROSEMIDE
     Route: 048
  4. LASIX [Concomitant]
     Active Substance: FUROSEMIDE
     Dosage: 10 MG, QD
     Route: 048

REACTIONS (8)
  - Skin discolouration [Unknown]
  - Fall [Unknown]
  - Mobility decreased [Unknown]
  - Gastrointestinal infection [Unknown]
  - Oedema peripheral [Unknown]
  - Paraesthesia [Unknown]
  - Hip fracture [Unknown]
  - Hyperkeratosis [Unknown]
